FAERS Safety Report 6758531-5 (Version None)
Quarter: 2010Q2

REPORT INFORMATION
  Report Type: 
  Country: None (occurrence: None)
  Receive Date: 20100607
  Receipt Date: 20100527
  Transmission Date: 20101027
  Serious: Yes (Hospitalization)
  Sender: FDA-Public Use
  Company Number: B0657910A

PATIENT
  Sex: Female
  Weight: 58 kg

DRUGS (1)
  1. ELTROMBOPAG [Suspect]
     Indication: AUTOIMMUNE THROMBOCYTOPENIA
     Dosage: 75MG PER DAY
     Route: 048
     Dates: start: 20090618

REACTIONS (1)
  - SARCOIDOSIS [None]
